FAERS Safety Report 14328903 (Version 2)
Quarter: 2018Q1

REPORT INFORMATION
  Report Type: Spontaneous
  Country: US (occurrence: US)
  Receive Date: 20171227
  Receipt Date: 20180110
  Transmission Date: 20180509
  Serious: No
  Sender: FDA-Public Use
  Company Number: US-PFIZER INC-2017544868

PATIENT
  Age: 33 Year
  Sex: Male
  Weight: 76.7 kg

DRUGS (1)
  1. MORPHINE SULFATE. [Suspect]
     Active Substance: MORPHINE SULFATE
     Indication: PAIN
     Dosage: 24 MG, UNK (3 DOSES)
     Route: 042

REACTIONS (2)
  - Drug effect incomplete [Unknown]
  - Nausea [Recovered/Resolved]
